FAERS Safety Report 16782118 (Version 1)
Quarter: 2019Q4

REPORT INFORMATION
  Report Type: Spontaneous
  Country: US (occurrence: US)
  Receive Date: 20190906
  Receipt Date: 20190906
  Transmission Date: 20200122
  Serious: Yes (Hospitalization)
  Sender: FDA-Public Use
  Company Number: None

PATIENT
  Age: 52 Year
  Sex: Female

DRUGS (7)
  1. TRAMADOL. [Concomitant]
     Active Substance: TRAMADOL
  2. GLATIRAMER [Suspect]
     Active Substance: GLATIRAMER
     Indication: MULTIPLE SCLEROSIS
     Dosage: ?          OTHER FREQUENCY:3 TIMES A WEEK;?
     Route: 058
     Dates: start: 20190524
  3. ASPIRIN. [Concomitant]
     Active Substance: ASPIRIN
  4. BACLOREN [Concomitant]
  5. MELOXICAN [Concomitant]
     Active Substance: MELOXICAM
  6. LEVOTHYROXIN [Concomitant]
     Active Substance: LEVOTHYROXINE
  7. CITOLOPRAM [Concomitant]

REACTIONS (2)
  - Pain [None]
  - Injection site pain [None]

NARRATIVE: CASE EVENT DATE: 20190905
